FAERS Safety Report 7406064-5 (Version None)
Quarter: 2011Q2

REPORT INFORMATION
  Report Type: 
  Country: None (occurrence: None)
  Receive Date: 20110411
  Receipt Date: 20110402
  Transmission Date: 20111010
  Serious: Yes (Other)
  Sender: FDA-Public Use
  Company Number: B0710285A

PATIENT
  Sex: Female

DRUGS (4)
  1. KIVEXA [Suspect]
     Route: 065
     Dates: end: 20110318
  2. RITONAVIR [Suspect]
     Indication: HIV INFECTION
     Dates: end: 20110318
  3. DARUNAVIR [Suspect]
     Indication: PRODUCT USED FOR UNKNOWN INDICATION
     Route: 048
     Dates: end: 20110318
  4. TRUVADA [Suspect]
     Route: 065
     Dates: end: 20110318

REACTIONS (1)
  - RASH GENERALISED [None]
